FAERS Safety Report 23307140 (Version 1)
Quarter: 2023Q4

REPORT INFORMATION
  Report Type: Spontaneous
  Country: US (occurrence: US)
  Receive Date: 20231218
  Receipt Date: 20231218
  Transmission Date: 20240110
  Serious: No
  Sender: FDA-Public Use
  Company Number: US-RECKITT BENCKISER HEALTHCARE INT LIMITED-RB-093374-2023

PATIENT
  Age: 5 Year
  Sex: Male
  Weight: 18.64 kg

DRUGS (1)
  1. DELSYM AND CHILDRENS DELSYM [Suspect]
     Active Substance: DEXTROMETHORPHAN
     Indication: Cough
     Dosage: 2.5 ML TID.
     Route: 048

REACTIONS (2)
  - Accidental overdose [Unknown]
  - Product use issue [Unknown]
